FAERS Safety Report 12585429 (Version 1)
Quarter: 2016Q3

REPORT INFORMATION
  Report Type: Spontaneous
  Country: US (occurrence: US)
  Receive Date: 20160724
  Receipt Date: 20160724
  Transmission Date: 20161109
  Serious: Yes (Hospitalization)
  Sender: FDA-Public Use
  Company Number: US-UCBSA-2016016715

PATIENT
  Age: 24 Year
  Sex: Male
  Weight: 56.24 kg

DRUGS (5)
  1. ATENOLOL. [Concomitant]
     Active Substance: ATENOLOL
     Dosage: 25 MG, ONCE DAILY (QD)
     Dates: start: 20160222
  2. ATENOLOL. [Concomitant]
     Active Substance: ATENOLOL
     Indication: TACHYCARDIA
     Dosage: 25 MG, 2X/DAY (BID)
     Route: 048
     Dates: start: 2013
  3. TYLENOL [Concomitant]
     Active Substance: ACETAMINOPHEN
     Indication: PRODUCT USED FOR UNKNOWN INDICATION
  4. SINGULAIR [Concomitant]
     Active Substance: MONTELUKAST SODIUM
     Indication: SEASONAL ALLERGY
     Dosage: 10 MG, ONCE DAILY (QD) (BED TIME)
     Route: 048
  5. KEPPRA [Suspect]
     Active Substance: LEVETIRACETAM
     Indication: SEIZURE
     Dosage: 2250 MG, ONCE DAILY (QD) AT BEDTIME
     Route: 048
     Dates: start: 201210

REACTIONS (3)
  - Pneumonia [Recovered/Resolved]
  - Bronchitis [Recovered/Resolved]
  - Tachycardia [Recovered/Resolved]

NARRATIVE: CASE EVENT DATE: 201212
